FAERS Safety Report 6483097-7 (Version None)
Quarter: 2009Q4

REPORT INFORMATION
  Report Type: 
  Country: None (occurrence: None)
  Receive Date: 20091208
  Receipt Date: 20091208
  Transmission Date: 20100525
  Serious: Yes (Death)
  Sender: FDA-Public Use
  Company Number: None

PATIENT
  Sex: Female
  Weight: 45.3597 kg

DRUGS (2)
  1. ETANERCEPT 50MG Q WEEK S Q [Suspect]
     Indication: RHEUMATOID ARTHRITIS
     Dosage: 50 MG QWEEK SQ
     Route: 058
     Dates: start: 20020101
  2. PREDNISONE 5MG PREDNISONE [Suspect]
     Indication: RHEUMATOID ARTHRITIS
     Dosage: 5MG QDAY PO
     Route: 048
     Dates: start: 20020101

REACTIONS (3)
  - ACUTE RESPIRATORY DISTRESS SYNDROME [None]
  - H1N1 INFLUENZA [None]
  - MULTI-ORGAN FAILURE [None]
